FAERS Safety Report 22597513 (Version 1)
Quarter: 2023Q2

REPORT INFORMATION
  Report Type: Report from Study
  Country: US (occurrence: US)
  Receive Date: 20230614
  Receipt Date: 20230614
  Transmission Date: 20230721
  Serious: Yes (Other)
  Sender: FDA-Public Use
  Company Number: US-ABBVIE-5288012

PATIENT
  Age: 68 Year
  Sex: Male

DRUGS (1)
  1. HUMIRA [Suspect]
     Active Substance: ADALIMUMAB
     Indication: Rheumatoid arthritis
     Dosage: FORM STRENGTH: 40 MILLIGRAM
     Route: 058
     Dates: start: 20150611

REACTIONS (9)
  - Transient ischaemic attack [Recovered/Resolved]
  - Neuralgia [Recovered/Resolved with Sequelae]
  - Rheumatoid arthritis [Not Recovered/Not Resolved]
  - Hip arthroplasty [Not Recovered/Not Resolved]
  - Crying [Recovered/Resolved]
  - Stress [Recovered/Resolved]
  - Back injury [Recovered/Resolved with Sequelae]
  - Hip arthroplasty [Not Recovered/Not Resolved]
  - Fear of injection [Recovered/Resolved]

NARRATIVE: CASE EVENT DATE: 20200609
